FAERS Safety Report 18338922 (Version 2)
Quarter: 2021Q1

REPORT INFORMATION
  Report Type: Report from Study
  Country: CA (occurrence: CA)
  Receive Date: 20201002
  Receipt Date: 20210323
  Transmission Date: 20210419
  Serious: Yes (Death)
  Sender: FDA-Public Use
  Company Number: CA-PFIZER INC-2020378719

PATIENT
  Age: 59 Year
  Sex: Female

DRUGS (6)
  1. ATENOL [Concomitant]
     Active Substance: ATENOLOL
  2. PERINDOPRIL [Concomitant]
     Active Substance: PERINDOPRIL
  3. ROSUVASTATIN. [Concomitant]
     Active Substance: ROSUVASTATIN
  4. AVASTIN [Suspect]
     Active Substance: BEVACIZUMAB
     Indication: BRAIN NEOPLASM MALIGNANT
     Dosage: 700 MG, EVERY 2 WEEKS
     Route: 042
     Dates: start: 2019, end: 2019
  5. AVASTIN [Suspect]
     Active Substance: BEVACIZUMAB
     Dosage: 700 MG, EVERY 2 WEEKS
     Route: 042
     Dates: start: 2019, end: 2019
  6. DEXAMETHASONE. [Concomitant]
     Active Substance: DEXAMETHASONE
     Dosage: DOSE REDUCED TO 2 MG
     Route: 048

REACTIONS (4)
  - Wheelchair user [Not Recovered/Not Resolved]
  - Death [Fatal]
  - Blood pressure systolic increased [Unknown]
  - Oxygen saturation decreased [Unknown]

NARRATIVE: CASE EVENT DATE: 2019
